FAERS Safety Report 12732823 (Version 1)
Quarter: 2016Q3

REPORT INFORMATION
  Report Type: Spontaneous
  Country: CN (occurrence: CN)
  Receive Date: 20160912
  Receipt Date: 20160912
  Transmission Date: 20161109
  Serious: Yes (Other)
  Sender: FDA-Public Use
  Company Number: CN-MYLANLABS-2016M1038352

PATIENT

DRUGS (2)
  1. CARBAMAZEPINE. [Suspect]
     Active Substance: CARBAMAZEPINE
     Dosage: 125 MG, BID
     Route: 048
  2. CARBAMAZEPINE. [Suspect]
     Active Substance: CARBAMAZEPINE
     Indication: LIVER DISORDER
     Dosage: 25 MG, BID
     Route: 048

REACTIONS (3)
  - Alanine aminotransferase increased [Unknown]
  - Toxicity to various agents [Recovering/Resolving]
  - Gamma-glutamyltransferase increased [Recovering/Resolving]
